FAERS Safety Report 6287914-5 (Version None)
Quarter: 2009Q3

REPORT INFORMATION
  Report Type: 
  Country: None (occurrence: None)
  Receive Date: 20090729
  Receipt Date: 20090716
  Transmission Date: 20100115
  Serious: Yes (Hospitalization)
  Sender: FDA-Public Use
  Company Number: US-JNJFOC-20090305770

PATIENT
  Sex: Male
  Weight: 108.86 kg

DRUGS (8)
  1. TRAMADOL HCL [Suspect]
     Indication: DRUG USE FOR UNKNOWN INDICATION
     Route: 048
  2. NOVOLIN 70/30 [Concomitant]
     Dosage: 70 UNITS - 30 UNITS /ML
     Route: 065
  3. LISINOPRIL [Concomitant]
     Route: 065
  4. SIMVASTATIN [Concomitant]
     Dosage: AT BEDTIME
     Route: 065
  5. UNIVASC [Concomitant]
     Route: 065
  6. ULTRAM [Concomitant]
     Route: 065
  7. IBUPROFEN [Concomitant]
     Route: 065
  8. LIPITOR [Concomitant]
     Dosage: AT BEDTIME
     Route: 065

REACTIONS (8)
  - ANXIETY [None]
  - ARTHRALGIA [None]
  - CONSTIPATION [None]
  - DRUG INEFFECTIVE [None]
  - DYSPNOEA [None]
  - HEADACHE [None]
  - MYALGIA [None]
  - PALPITATIONS [None]
